FAERS Safety Report 9334114 (Version 1)
Quarter: 2013Q2

REPORT INFORMATION
  Report Type: Spontaneous
  Country: CA (occurrence: None)
  Receive Date: 20130604
  Receipt Date: 20130604
  Transmission Date: 20140414
  Serious: Yes (Hospitalization)
  Sender: FDA-Public Use
  Company Number: 2013P1006383

PATIENT
  Age: 68 Year
  Sex: Male
  Weight: 80 kg

DRUGS (9)
  1. METFORMIN [Suspect]
  2. AMLODIPINE [Suspect]
  3. ETHANOL [Suspect]
  4. ACETYLSALICYCLIC ACID [Concomitant]
  5. IRBESARTAN [Concomitant]
  6. GLYBURIDE [Concomitant]
  7. TAMSULOSIN [Concomitant]
  8. VITAMIN B12 [Concomitant]
  9. CLONAZEPAM [Concomitant]

REACTIONS (7)
  - Suicide attempt [None]
  - Haemodynamic instability [None]
  - Blood pressure increased [None]
  - Blood glucose decreased [None]
  - Hypotension [None]
  - Metabolic acidosis [None]
  - Shock [None]
